FAERS Safety Report 9452875 (Version 3)
Quarter: 2013Q4

REPORT INFORMATION
  Report Type: Spontaneous
  Country: US (occurrence: US)
  Receive Date: 20130812
  Receipt Date: 20131031
  Transmission Date: 20140711
  Serious: Yes (Other)
  Sender: FDA-Public Use
  Company Number: US-PFIZER INC-2013231501

PATIENT
  Age: 49 Year
  Sex: Male
  Weight: 113.38 kg

DRUGS (6)
  1. CHANTIX [Suspect]
     Indication: SMOKING CESSATION THERAPY
     Dosage: UNK
     Route: 048
     Dates: start: 20100407, end: 201004
  2. CHANTIX [Suspect]
     Dosage: UNK
     Route: 048
     Dates: start: 2011
  3. LISINOPRIL [Concomitant]
     Indication: HYPERTENSION
     Dosage: UNK
  4. PROTONIX [Concomitant]
     Dosage: UNK
  5. ADVAIR [Concomitant]
     Dosage: UNK
  6. ASPIRIN [Concomitant]
     Dosage: UNK

REACTIONS (4)
  - Myocardial infarction [Recovered/Resolved]
  - Dyspnoea [Recovered/Resolved]
  - Device occlusion [Unknown]
  - Feeling abnormal [Unknown]
